FAERS Safety Report 4595582-3 (Version None)
Quarter: 2005Q1

REPORT INFORMATION
  Report Type: 
  Country: None (occurrence: None)
  Receive Date: 20050224
  Receipt Date: 20050207
  Transmission Date: 20050727
  Serious: Yes (Death, Hospitalization)
  Sender: FDA-Public Use
  Company Number: USA050290210

PATIENT
  Age: 78 Year
  Sex: Male

DRUGS (7)
  1. HUMALOG [Suspect]
     Indication: HYPERGLYCAEMIA
  2. HUMULIN 70/30 [Suspect]
  3. LANTUS [Concomitant]
  4. DECADRON (DEXAMTHEASONE SODIUM PHOSPHATE) [Concomitant]
  5. TRENTAL [Concomitant]
  6. CIPRO [Concomitant]
  7. METFORMIN [Concomitant]

REACTIONS (6)
  - ASTHENIA [None]
  - CARDIAC DISORDER [None]
  - HEART RATE IRREGULAR [None]
  - MEDICATION ERROR [None]
  - PHARMACEUTICAL PRODUCT COMPLAINT [None]
  - PNEUMONIA STAPHYLOCOCCAL [None]
